FAERS Safety Report 21676201 (Version 1)
Quarter: 2022Q4

REPORT INFORMATION
  Report Type: Spontaneous
  Country: US (occurrence: US)
  Receive Date: 20221202
  Receipt Date: 20221202
  Transmission Date: 20230112
  Serious: No
  Sender: FDA-Public Use
  Company Number: US-BAYER-2022A156700

PATIENT

DRUGS (1)
  1. ASTEPRO [Suspect]
     Active Substance: AZELASTINE HYDROCHLORIDE
     Dosage: UNK

REACTIONS (6)
  - Upper-airway cough syndrome [None]
  - Oropharyngeal pain [None]
  - Therapeutic product effect delayed [None]
  - Therapeutic product effect decreased [None]
  - Sneezing [None]
  - Rhinorrhoea [None]
